FAERS Safety Report 7463112-4 (Version None)
Quarter: 2011Q2

REPORT INFORMATION
  Report Type: 
  Country: None (occurrence: None)
  Receive Date: 20110506
  Receipt Date: 20110502
  Transmission Date: 20111010
  Serious: Yes (Life-Threatening, Hospitalization)
  Sender: FDA-Public Use
  Company Number: FR-SANOFI-AVENTIS-2011SA026904

PATIENT
  Age: 72 Year
  Sex: Male

DRUGS (13)
  1. FLUOROURACIL [Suspect]
     Dosage: DOSE:1 UNIT(S)
     Route: 042
     Dates: start: 20080505, end: 20101222
  2. TRANDOLAPRIL [Concomitant]
     Route: 048
  3. MITOMYCIN [Suspect]
     Route: 042
     Dates: start: 20100813, end: 20100924
  4. LASIX [Concomitant]
     Route: 048
  5. LEUCOVORIN CALCIUM [Suspect]
     Dosage: DOSE:1 UNIT(S)
     Route: 042
     Dates: start: 20100505, end: 20101222
  6. PLAVIX [Concomitant]
     Indication: THROMBOSIS PROPHYLAXIS
     Route: 048
  7. METFORMIN HCL [Concomitant]
     Route: 048
  8. ELOXATIN [Suspect]
     Route: 042
     Dates: start: 20100317, end: 20100428
  9. AVASTIN [Suspect]
     Dosage: DOSE:1 UNIT(S)
     Route: 042
     Dates: start: 20101117, end: 20101222
  10. TAHOR [Concomitant]
     Route: 048
  11. CAMPTOSAR [Suspect]
     Dosage: DOSE:1 UNIT(S)
     Route: 042
     Dates: start: 20091230, end: 20101222
  12. ERBITUX [Suspect]
     Route: 042
     Dates: start: 20100608, end: 20100713
  13. IKOREL [Concomitant]
     Route: 048

REACTIONS (4)
  - CARDIAC FAILURE [None]
  - HYPOTENSION [None]
  - DIARRHOEA [None]
  - CAROTID ARTERIOSCLEROSIS [None]
